FAERS Safety Report 9622987 (Version 1)
Quarter: 2013Q4

REPORT INFORMATION
  Report Type: Spontaneous
  Country: US (occurrence: None)
  Receive Date: 20131010
  Receipt Date: 20131010
  Transmission Date: 20140711
  Serious: Yes (Death, Hospitalization)
  Sender: FDA-Public Use
  Company Number: 2013CP000114

PATIENT
  Sex: Male

DRUGS (1)
  1. OFIRMEV [Suspect]
     Indication: PAIN
     Route: 042

REACTIONS (1)
  - Hepatic failure [None]
